FAERS Safety Report 9297476 (Version 3)
Quarter: 2013Q4

REPORT INFORMATION
  Report Type: Spontaneous
  Country: US (occurrence: US)
  Receive Date: 20130520
  Receipt Date: 20131120
  Transmission Date: 20140711
  Serious: Yes (Hospitalization, Disabling)
  Sender: FDA-Public Use
  Company Number: US-BAYER-2013-059984

PATIENT
  Age: 27 Year
  Sex: Female
  Weight: 70.3 kg

DRUGS (2)
  1. MIRENA [Suspect]
     Indication: CONTRACEPTION
     Dosage: 20 MCG/24HR, CONT
     Route: 015
     Dates: start: 2008, end: 201105
  2. ROBINUL [Concomitant]
     Indication: HYPERHIDROSIS
     Dosage: UNK
     Dates: start: 2010

REACTIONS (14)
  - Uterine perforation [None]
  - Device expulsion [None]
  - Endometriosis [None]
  - Ovarian cyst [None]
  - Fallopian tube obstruction [None]
  - Infertility female [None]
  - Pelvic pain [Not Recovered/Not Resolved]
  - Injury [None]
  - Pain [None]
  - Emotional distress [None]
  - Depression [None]
  - Anxiety [None]
  - Device issue [None]
  - Emotional distress [None]
